FAERS Safety Report 8378555-4 (Version None)
Quarter: 2012Q2

REPORT INFORMATION
  Report Type: 
  Country: None (occurrence: None)
  Receive Date: 20120522
  Receipt Date: 20120509
  Transmission Date: 20120825
  Serious: Yes (Hospitalization, Other)
  Sender: FDA-Public Use
  Company Number: US-ELI_LILLY_AND_COMPANY-US201107000763

PATIENT
  Sex: Female

DRUGS (8)
  1. FLAXSEED OIL [Concomitant]
  2. LEVOTHYROXINE SODIUM [Concomitant]
  3. FORTEO [Suspect]
     Dosage: 20 UG, QD
     Route: 058
     Dates: end: 20110920
  4. VITAMIN D [Concomitant]
  5. FORTEO [Suspect]
     Dosage: 20 UG, QD
     Route: 058
     Dates: start: 20110601
  6. CALCIUM [Concomitant]
  7. FORTEO [Suspect]
     Indication: OSTEOPOROSIS
     Dosage: 20 UG, QD
     Route: 058
     Dates: start: 20110620
  8. FORTEO [Suspect]
     Dosage: 20 UG, QD
     Route: 058

REACTIONS (9)
  - HEART VALVE INCOMPETENCE [None]
  - CARDIAC FAILURE CONGESTIVE [None]
  - MUSCLE SPASMS [None]
  - WEIGHT BEARING DIFFICULTY [None]
  - FEMUR FRACTURE [None]
  - FALL [None]
  - DYSPNOEA [None]
  - ASTHENIA [None]
  - VIRAL INFECTION [None]
